FAERS Safety Report 8515759-1 (Version None)
Quarter: 2012Q3

REPORT INFORMATION
  Report Type: 
  Country: None (occurrence: None)
  Receive Date: 20120717
  Receipt Date: 20120713
  Transmission Date: 20120928
  Serious: Yes (Death, Hospitalization)
  Sender: FDA-Public Use
  Company Number: PHHY2012JP060443

PATIENT
  Age: 15 Year
  Sex: Male

DRUGS (4)
  1. TANDOSPIRONE [Suspect]
     Indication: SOCIAL PHOBIA
     Dosage: 60 MG, UNK
     Route: 048
     Dates: start: 20090101
  2. FLUVOXAMINE MALEATE [Suspect]
     Dosage: 120 DF, UNK
     Route: 048
  3. TANDOSPIRONE [Suspect]
     Dosage: 142 DF, UNK
     Route: 048
  4. FLUVOXAMINE MALEATE [Suspect]
     Indication: SOCIAL PHOBIA
     Dosage: 15 MG, UNK
     Route: 048
     Dates: start: 20090101

REACTIONS (20)
  - MOUTH HAEMORRHAGE [None]
  - RHABDOMYOLYSIS [None]
  - LOSS OF CONSCIOUSNESS [None]
  - HEART RATE INCREASED [None]
  - MUSCLE RIGIDITY [None]
  - COMA [None]
  - CONVULSION [None]
  - HYPOTENSION [None]
  - PUPILLARY REFLEX IMPAIRED [None]
  - BODY TEMPERATURE INCREASED [None]
  - CARDIO-RESPIRATORY ARREST [None]
  - INTENTIONAL OVERDOSE [None]
  - HYPERHIDROSIS [None]
  - DISSEMINATED INTRAVASCULAR COAGULATION [None]
  - UNRESPONSIVE TO STIMULI [None]
  - METABOLIC ACIDOSIS [None]
  - SEROTONIN SYNDROME [None]
  - BRAIN OEDEMA [None]
  - RENAL FAILURE ACUTE [None]
  - INFLAMMATION [None]
